FAERS Safety Report 10524339 (Version 1)
Quarter: 2014Q4

REPORT INFORMATION
  Report Type: Report from Study
  Country: DE (occurrence: DE)
  Receive Date: 20141017
  Receipt Date: 20141017
  Transmission Date: 20150528
  Serious: Yes (Other)
  Sender: FDA-Public Use
  Company Number: DE-BAYER-2014-150126

PATIENT

DRUGS (2)
  1. ACETYLSALICYLIC ACID (} 100 MG) [Suspect]
     Active Substance: ASPIRIN
     Indication: IMMUNOLOGY TEST
     Dosage: DOSE ESCALATION TO 1000 MG
     Route: 048
  2. ALCOHOL. [Suspect]
     Active Substance: ALCOHOL
     Indication: IMMUNOLOGY TEST
     Dosage: DOSE ESCALATION TO 30 ML
     Route: 048

REACTIONS (1)
  - Hypersensitivity [None]
